FAERS Safety Report 24761617 (Version 1)
Quarter: 2024Q4

REPORT INFORMATION
  Report Type: Spontaneous
  Country: US (occurrence: US)
  Receive Date: 20241220
  Receipt Date: 20241220
  Transmission Date: 20250115
  Serious: Yes (Other)
  Sender: PFIZER
  Company Number: US-PFIZER INC-202400327344

PATIENT
  Age: 57 Year
  Sex: Female
  Weight: 77.11 kg

DRUGS (1)
  1. IBRANCE [Suspect]
     Active Substance: PALBOCICLIB
     Indication: HER2 negative breast cancer
     Dosage: 125 MG
     Dates: start: 2020

REACTIONS (5)
  - Hysterectomy [Unknown]
  - Appendicectomy [Unknown]
  - Fatigue [Unknown]
  - Brain fog [Unknown]
  - Neoplasm progression [Unknown]

NARRATIVE: CASE EVENT DATE: 20220101
